FAERS Safety Report 24340403 (Version 2)
Quarter: 2024Q3

REPORT INFORMATION
  Report Type: Report from Study
  Country: CL (occurrence: CL)
  Receive Date: 20240919
  Receipt Date: 20240928
  Transmission Date: 20241016
  Serious: Yes (Other)
  Sender: JOHNSON AND JOHNSON
  Company Number: CL-JNJFOC-20240820716

PATIENT
  Age: 36 Year
  Sex: Male

DRUGS (1)
  1. SIMPONI [Suspect]
     Active Substance: GOLIMUMAB
     Indication: Colitis ulcerative
     Route: 058
     Dates: start: 20230706

REACTIONS (5)
  - Colitis ulcerative [Unknown]
  - Infection [Unknown]
  - Drug ineffective [Unknown]
  - Product dose omission issue [Unknown]
  - Treatment noncompliance [Unknown]
